FAERS Safety Report 6381330-3 (Version None)
Quarter: 2009Q3

REPORT INFORMATION
  Report Type: 
  Country: None (occurrence: None)
  Receive Date: 20090923
  Receipt Date: 20090908
  Transmission Date: 20100115
  Serious: Yes (Other)
  Sender: FDA-Public Use
  Company Number: 2009AL005987

PATIENT
  Age: 61 Year
  Sex: Male

DRUGS (4)
  1. IRINOTECAN HYDROCHLORIDE [Suspect]
     Indication: COLORECTAL CANCER METASTATIC
  2. CETUXIMAB [Concomitant]
  3. CALCIUM FOLINATE [Concomitant]
  4. FLUOROURACIL [Concomitant]

REACTIONS (1)
  - PULMONARY EMBOLISM [None]
